FAERS Safety Report 8028368-8 (Version None)
Quarter: 2012Q1

REPORT INFORMATION
  Report Type: 
  Country: None (occurrence: None)
  Receive Date: 20120106
  Receipt Date: 20120105
  Transmission Date: 20120608
  Serious: Yes (Other)
  Sender: FDA-Public Use
  Company Number: US-ROCHE-694396

PATIENT
  Sex: Male
  Weight: 64.4 kg

DRUGS (4)
  1. CLEOCIN T [Concomitant]
     Indication: ACNE
  2. ACCUTANE [Suspect]
     Indication: ACNE
     Route: 048
     Dates: start: 20010816, end: 20011117
  3. MINOCYCLINE HCL [Concomitant]
     Indication: ACNE
  4. CLINDAMYCIN [Concomitant]
     Indication: ACNE

REACTIONS (8)
  - ANAL FISTULA [None]
  - INFLAMMATORY BOWEL DISEASE [None]
  - COLITIS ULCERATIVE [None]
  - ANAL ABSCESS [None]
  - CROHN'S DISEASE [None]
  - DEPRESSION [None]
  - ANAL FISSURE [None]
  - PERIRECTAL ABSCESS [None]
